FAERS Safety Report 6974577-6 (Version None)
Quarter: 2010Q3

REPORT INFORMATION
  Report Type: 
  Country: None (occurrence: None)
  Receive Date: 20100909
  Receipt Date: 20081104
  Transmission Date: 20110219
  Serious: No
  Sender: FDA-Public Use
  Company Number: US-WYE-H06666308

PATIENT
  Age: 64 Year
  Sex: Female

DRUGS (7)
  1. PROTONIX [Suspect]
     Indication: GASTROOESOPHAGEAL REFLUX DISEASE
     Route: 048
     Dates: start: 20080901
  2. AMLODIPINE [Concomitant]
  3. ALBUTEROL [Concomitant]
  4. POTASSIUM CHLORIDE [Concomitant]
  5. CONJUGATED ESTROGENS [Concomitant]
  6. COZAAR [Concomitant]
  7. BUSPAR [Concomitant]

REACTIONS (1)
  - BLOOD POTASSIUM DECREASED [None]
